FAERS Safety Report 7338339-2 (Version None)
Quarter: 2011Q1

REPORT INFORMATION
  Report Type: 
  Country: None (occurrence: None)
  Receive Date: 20110224
  Receipt Date: 20110210
  Transmission Date: 20110831
  Serious: Yes (Hospitalization, Disabling, Other)
  Sender: FDA-Public Use
  Company Number: 814820

PATIENT
  Age: 64 Year
  Sex: Male
  Weight: 60 kg

DRUGS (3)
  1. AVASTIN [Concomitant]
  2. GEMCITABINE HYDROCHLORIDE [Suspect]
     Indication: LUNG ADENOCARCINOMA
     Dosage: 2 G/M2, INTRAVENOUS
     Route: 042
     Dates: start: 20110110, end: 20110110
  3. GEMCITABINE HYDROCHLORIDE [Suspect]
     Indication: LUNG ADENOCARCINOMA
     Dosage: 2G/M2, INTRAVENOUS
     Route: 042
     Dates: start: 20101026

REACTIONS (2)
  - GANGRENE [None]
  - EXTREMITY NECROSIS [None]
